FAERS Safety Report 6087309-3 (Version None)
Quarter: 2009Q1

REPORT INFORMATION
  Report Type: 
  Country: None (occurrence: None)
  Receive Date: 20090223
  Receipt Date: 20090219
  Transmission Date: 20090719
  Serious: Yes (Hospitalization)
  Sender: FDA-Public Use
  Company Number: A0769309A

PATIENT
  Age: 59 Year
  Sex: Male

DRUGS (7)
  1. PAXIL [Suspect]
     Dosage: 20MG PER DAY
     Route: 048
     Dates: start: 20050101
  2. COUMADIN [Concomitant]
  3. PROCARDIA [Concomitant]
  4. METHYLDOPA [Concomitant]
  5. LISINOPRIL [Concomitant]
  6. NEURONTIN [Concomitant]
  7. IBUPROFEN TABLETS [Concomitant]

REACTIONS (4)
  - CEREBROVASCULAR ACCIDENT [None]
  - MYOCARDIAL INFARCTION [None]
  - THROMBOSIS [None]
  - VASCULAR GRAFT [None]
